FAERS Safety Report 20097312 (Version 1)
Quarter: 2021Q4

REPORT INFORMATION
  Report Type: Spontaneous
  Country: US (occurrence: None)
  Receive Date: 20211120
  Receipt Date: 20211120
  Transmission Date: 20220303
  Serious: Yes (Life-Threatening)
  Sender: FDA-Public Use
  Company Number: None

PATIENT
  Age: 49 Year
  Sex: Female
  Weight: 63 kg

DRUGS (3)
  1. RISPERIDONE [Suspect]
     Active Substance: RISPERIDONE
     Indication: Bipolar disorder
     Dosage: FREQUENCY : TWICE A DAY;?
     Route: 048
     Dates: end: 20210121
  2. RISPERIDONE [Suspect]
     Active Substance: RISPERIDONE
     Indication: Arthralgia
  3. TOPIRAMATE [Suspect]
     Active Substance: TOPIRAMATE

REACTIONS (2)
  - Fatigue [None]
  - Photophobia [None]

NARRATIVE: CASE EVENT DATE: 20210111
